FAERS Safety Report 16049272 (Version 1)
Quarter: 2019Q1

REPORT INFORMATION
  Report Type: Spontaneous
  Country: CA (occurrence: CA)
  Receive Date: 20190307
  Receipt Date: 20190307
  Transmission Date: 20190418
  Serious: Yes (Life-Threatening, Hospitalization, Disabling)
  Sender: FDA-Public Use
  Company Number: CA-JNJFOC-20190304656

PATIENT
  Age: 66 Year
  Sex: Female
  Weight: 82 kg

DRUGS (13)
  1. CLAVULIN [Concomitant]
     Active Substance: AMOXICILLIN\CLAVULANIC ACID
  2. VITAMIN D [Concomitant]
     Active Substance: CHOLECALCIFEROL
  3. PREDNISONE. [Concomitant]
     Active Substance: PREDNISONE
  4. CALCIUM [Concomitant]
     Active Substance: CALCIUM
  5. TREMFYA [Suspect]
     Active Substance: GUSELKUMAB
     Indication: PSORIASIS
     Route: 058
  6. CLOTRIMAZOLE. [Concomitant]
     Active Substance: CLOTRIMAZOLE
  7. DERMBURO [Concomitant]
  8. ELAVIL [Concomitant]
     Active Substance: AMITRIPTYLINE HYDROCHLORIDE
  9. CRESTOR [Concomitant]
     Active Substance: ROSUVASTATIN CALCIUM
  10. HYDROCORTISONE. [Concomitant]
     Active Substance: HYDROCORTISONE
  11. MORPHINE [Concomitant]
     Active Substance: MORPHINE
  12. TREMFYA [Suspect]
     Active Substance: GUSELKUMAB
     Indication: PALMOPLANTAR KERATODERMA
     Route: 058
  13. CANDESARTAN. [Concomitant]
     Active Substance: CANDESARTAN

REACTIONS (7)
  - Product use in unapproved indication [Unknown]
  - Cerebral haemorrhage [Unknown]
  - Hydrocephalus [Unknown]
  - Intensive care [Unknown]
  - Off label use [Unknown]
  - Ventricular drainage [Unknown]
  - Endotracheal intubation [Unknown]
